FAERS Safety Report 16813447 (Version 4)
Quarter: 2019Q4

REPORT INFORMATION
  Report Type: Spontaneous
  Country: AR (occurrence: AR)
  Receive Date: 20190917
  Receipt Date: 20191228
  Transmission Date: 20200122
  Serious: Yes (Other)
  Sender: FDA-Public Use
  Company Number: AR-AMGEN-ARGSP2019151827

PATIENT
  Age: 56 Year
  Sex: Female

DRUGS (1)
  1. ENBREL [Suspect]
     Active Substance: ETANERCEPT
     Indication: RHEUMATOID ARTHRITIS
     Dosage: 50 MILLIGRAM, WEEKLY
     Route: 065
     Dates: start: 20150414

REACTIONS (8)
  - Panic attack [Recovering/Resolving]
  - Fall [Recovering/Resolving]
  - Limb discomfort [Recovering/Resolving]
  - Hip fracture [Recovering/Resolving]
  - Loss of personal independence in daily activities [Recovering/Resolving]
  - Bone disorder [Recovering/Resolving]
  - Underweight [Recovering/Resolving]
  - Weight decreased [Recovering/Resolving]

NARRATIVE: CASE EVENT DATE: 201907
